FAERS Safety Report 9466928 (Version 2)
Quarter: 2013Q4

REPORT INFORMATION
  Report Type: Spontaneous
  Country: IT (occurrence: IT)
  Receive Date: 20130820
  Receipt Date: 20131017
  Transmission Date: 20140711
  Serious: Yes (Hospitalization)
  Sender: FDA-Public Use
  Company Number: PHHY2013IT088236

PATIENT
  Sex: Male

DRUGS (6)
  1. ATENOLOL [Suspect]
     Indication: HYPERTENSION
     Dosage: 100 MG, QD
     Route: 048
     Dates: start: 20070101, end: 20130620
  2. KCL RETARD [Suspect]
     Indication: HYPERTENSION
     Dosage: 1 DF, QD
     Route: 048
     Dates: start: 20070101, end: 20130620
  3. LASIX [Concomitant]
  4. COUMADINE [Concomitant]
  5. CRESTOR [Concomitant]
     Indication: DYSLIPIDAEMIA
  6. PANTORC [Concomitant]

REACTIONS (2)
  - Hyperkalaemia [Recovered/Resolved]
  - Nodal arrhythmia [Recovered/Resolved]
